FAERS Safety Report 20291258 (Version 1)
Quarter: 2022Q1

REPORT INFORMATION
  Report Type: Spontaneous
  Country: US (occurrence: None)
  Receive Date: 20220103
  Receipt Date: 20220103
  Transmission Date: 20220423
  Serious: Yes (Other)
  Sender: FDA-Public Use
  Company Number: None

PATIENT
  Age: 70 Year
  Sex: Female
  Weight: 58.5 kg

DRUGS (1)
  1. EUTHYROX [Suspect]
     Active Substance: LEVOTHYROXINE SODIUM
     Indication: Hypothyroidism
     Dosage: FREQUENCY : DAILY;?
     Route: 048
     Dates: start: 20211128, end: 20211219

REACTIONS (7)
  - Product substitution issue [None]
  - Constipation [None]
  - Weight increased [None]
  - Fatigue [None]
  - Somnolence [None]
  - Myalgia [None]
  - Alopecia [None]

NARRATIVE: CASE EVENT DATE: 20211230
